FAERS Safety Report 18815993 (Version 1)
Quarter: 2021Q1

REPORT INFORMATION
  Report Type: Spontaneous
  Country: US (occurrence: US)
  Receive Date: 20210201
  Receipt Date: 20210201
  Transmission Date: 20210419
  Serious: Yes (Other)
  Sender: FDA-Public Use
  Company Number: US-GLAXOSMITHKLINE-US2021GSK023170

PATIENT
  Sex: Male

DRUGS (3)
  1. RANITIDINE. [Suspect]
     Active Substance: RANITIDINE
     Indication: GASTRIC CANCER
     Dosage: UNK UNK, QD
     Route: 065
     Dates: start: 201704, end: 201911
  2. RANITIDINE. [Suspect]
     Active Substance: RANITIDINE
     Indication: GASTRIC CANCER
     Dosage: UNK, QD
     Route: 065
     Dates: start: 201704, end: 201911
  3. RANITIDINE. [Suspect]
     Active Substance: RANITIDINE
     Indication: GASTRIC CANCER
     Dosage: UNK, QD
     Route: 065
     Dates: start: 201704, end: 201911

REACTIONS (6)
  - Gastric cancer [Unknown]
  - Colorectal cancer [Unknown]
  - Lung neoplasm malignant [Unknown]
  - Bladder cancer [Unknown]
  - Hepatic cancer [Unknown]
  - Neoplasm malignant [Unknown]
